FAERS Safety Report 7104622-9 (Version None)
Quarter: 2010Q4

REPORT INFORMATION
  Report Type: 
  Country: None (occurrence: None)
  Receive Date: 20101116
  Receipt Date: 20100106
  Transmission Date: 20110411
  Serious: Yes (Hospitalization, Other)
  Sender: FDA-Public Use
  Company Number: US-ASTRAZENECA-2009SE12630

PATIENT
  Age: 20366 Day
  Sex: Male
  Weight: 93 kg

DRUGS (8)
  1. SEROQUEL [Suspect]
     Indication: DEPRESSION
     Dosage: 25,100-200 MG
     Route: 048
     Dates: start: 20030129, end: 20060301
  2. SEROQUEL [Suspect]
     Indication: ANXIETY
     Dosage: 25,100-200 MG
     Route: 048
     Dates: start: 20030129, end: 20060301
  3. SEROQUEL [Suspect]
     Route: 048
     Dates: start: 20041208, end: 20060510
  4. SEROQUEL [Suspect]
     Route: 048
     Dates: start: 20041208, end: 20060510
  5. RISPERDAL [Concomitant]
     Dates: start: 19890101, end: 20030129
  6. ZOLOFT [Concomitant]
     Dosage: 100-250 MG
     Route: 048
     Dates: start: 20020101
  7. SIMVASTATIN [Concomitant]
     Indication: BLOOD CHOLESTEROL INCREASED
  8. THORAZINE [Concomitant]
     Dates: start: 19810101

REACTIONS (6)
  - ADVERSE DRUG REACTION [None]
  - CHEST PAIN [None]
  - HYPERGLYCAEMIA [None]
  - NEUROPATHY PERIPHERAL [None]
  - PANCREATITIS [None]
  - TYPE 2 DIABETES MELLITUS [None]
